FAERS Safety Report 24813736 (Version 1)
Quarter: 2025Q1

REPORT INFORMATION
  Report Type: Other
  Country: IN (occurrence: IN)
  Receive Date: 20250107
  Receipt Date: 20250107
  Transmission Date: 20250409
  Serious: Yes (Hospitalization)
  Sender: ALVOGEN
  Company Number: IN-ALVOGEN-2024096038

PATIENT
  Age: 18 Month
  Sex: Female
  Weight: 10 kg

DRUGS (1)
  1. DAPSONE [Suspect]
     Active Substance: DAPSONE
     Indication: Product used for unknown indication
     Route: 048

REACTIONS (7)
  - Acute kidney injury [Recovered/Resolved]
  - Hypotension [Unknown]
  - Cyanosis central [Recovered/Resolved]
  - Accidental poisoning [Unknown]
  - Methaemoglobinaemia [Recovered/Resolved]
  - Tachycardia [Unknown]
  - Accidental exposure to product by child [Unknown]
